FAERS Safety Report 4732776-8 (Version None)
Quarter: 2005Q3

REPORT INFORMATION
  Report Type: 
  Country: None (occurrence: None)
  Receive Date: 20050803
  Receipt Date: 20050729
  Transmission Date: 20060218
  Serious: Yes (Death)
  Sender: FDA-Public Use
  Company Number: PK-GLAXOSMITHKLINE-B0389378A

PATIENT
  Age: 45 Year
  Sex: Female

DRUGS (1)
  1. ZINACEF [Suspect]
     Indication: DRUG USE FOR UNKNOWN INDICATION
     Route: 065

REACTIONS (1)
  - ANAPHYLACTIC SHOCK [None]
